FAERS Safety Report 23913205 (Version 1)
Quarter: 2024Q2

REPORT INFORMATION
  Report Type: Spontaneous
  Country: US (occurrence: US)
  Receive Date: 20240529
  Receipt Date: 20240529
  Transmission Date: 20240716
  Serious: No
  Sender: FDA-Public Use
  Company Number: US-STRIDES ARCOLAB LIMITED-2023SP017268

PATIENT

DRUGS (1)
  1. CYPROHEPTADINE [Suspect]
     Active Substance: CYPROHEPTADINE
     Indication: Appetite disorder
     Dosage: UNK
     Route: 065

REACTIONS (2)
  - Behaviour disorder [Unknown]
  - Off label use [Unknown]
